FAERS Safety Report 4910791-9 (Version None)
Quarter: 2006Q1

REPORT INFORMATION
  Report Type: 
  Country: None (occurrence: None)
  Receive Date: 20060214
  Receipt Date: 20060208
  Transmission Date: 20060701
  Serious: Yes (Hospitalization)
  Sender: FDA-Public Use
  Company Number: FR-AVENTIS-200610744EU

PATIENT
  Age: 71 Year
  Sex: Male

DRUGS (6)
  1. FLUDEX [Suspect]
     Route: 048
     Dates: end: 20051007
  2. MEDIATENSYL [Suspect]
     Route: 048
     Dates: end: 20051007
  3. CELANCE [Suspect]
     Route: 048
     Dates: start: 20050615, end: 20051007
  4. FUROSEMIDE [Concomitant]
  5. SOTALOL HCL [Concomitant]
  6. SINEMET [Concomitant]
     Dates: start: 20030615

REACTIONS (1)
  - CARDIAC FAILURE [None]
